FAERS Safety Report 23300385 (Version 1)
Quarter: 2023Q4

REPORT INFORMATION
  Report Type: Other
  Country: CA (occurrence: None)
  Receive Date: 20231215
  Receipt Date: 20231215
  Transmission Date: 20240110
  Serious: No
  Sender: FDA-Public Use
  Company Number: CA-ROCHE-3459666

PATIENT
  Sex: Female

DRUGS (1)
  1. OCREVUS [Suspect]
     Active Substance: OCRELIZUMAB
     Indication: Relapsing-remitting multiple sclerosis
     Dosage: 300 MG AT DAY 0 AND 14, THEN 600 MG EVERY 6 MONTHS
     Route: 042
     Dates: start: 20210603

REACTIONS (5)
  - Illness [Unknown]
  - Myalgia [Unknown]
  - Nasopharyngitis [Unknown]
  - Respiratory syncytial virus infection [Unknown]
  - Productive cough [Not Recovered/Not Resolved]
